FAERS Safety Report 4510926-6 (Version None)
Quarter: 2004Q4

REPORT INFORMATION
  Report Type: 
  Country: None (occurrence: None)
  Receive Date: 20041025
  Receipt Date: 20031105
  Transmission Date: 20050328
  Serious: Yes (Hospitalization)
  Sender: FDA-Public Use
  Company Number: NSADSS2002045460

PATIENT
  Age: 48 Year
  Sex: Female
  Weight: 99.7913 kg

DRUGS (51)
  1. REMICADE [Suspect]
     Indication: CROHN'S DISEASE
     Dosage: SEE IMAGE
     Route: 042
     Dates: start: 20020924, end: 20020924
  2. REMICADE [Suspect]
     Indication: CROHN'S DISEASE
     Dosage: SEE IMAGE
     Route: 042
     Dates: start: 19990601
  3. REMICADE [Suspect]
     Indication: CROHN'S DISEASE
     Dosage: SEE IMAGE
     Route: 042
     Dates: start: 19990804
  4. REMICADE [Suspect]
     Indication: CROHN'S DISEASE
     Dosage: SEE IMAGE
     Route: 042
     Dates: start: 19990929
  5. REMICADE [Suspect]
     Indication: CROHN'S DISEASE
     Dosage: SEE IMAGE
     Route: 042
     Dates: start: 19991124
  6. REMICADE [Suspect]
     Indication: CROHN'S DISEASE
     Dosage: SEE IMAGE
     Route: 042
     Dates: start: 20000121
  7. REMICADE [Suspect]
     Indication: CROHN'S DISEASE
     Dosage: SEE IMAGE
     Route: 042
     Dates: start: 20000414
  8. REMICADE [Suspect]
     Indication: CROHN'S DISEASE
     Dosage: SEE IMAGE
     Route: 042
     Dates: start: 20000519
  9. REMICADE [Suspect]
     Indication: CROHN'S DISEASE
     Dosage: SEE IMAGE
     Route: 042
     Dates: start: 20000622
  10. REMICADE [Suspect]
     Indication: CROHN'S DISEASE
     Dosage: SEE IMAGE
     Route: 042
     Dates: start: 20000804
  11. REMICADE [Suspect]
     Indication: CROHN'S DISEASE
     Dosage: SEE IMAGE
     Route: 042
     Dates: start: 20001110
  12. REMICADE [Suspect]
     Indication: CROHN'S DISEASE
     Dosage: SEE IMAGE
     Route: 042
     Dates: start: 20010106
  13. REMICADE [Suspect]
     Indication: CROHN'S DISEASE
     Dosage: SEE IMAGE
     Route: 042
     Dates: start: 20010427
  14. REMICADE [Suspect]
     Indication: CROHN'S DISEASE
     Dosage: SEE IMAGE
     Route: 042
     Dates: start: 20010626
  15. REMICADE [Suspect]
     Indication: CROHN'S DISEASE
     Dosage: SEE IMAGE
     Route: 042
     Dates: start: 20010817
  16. REMICADE [Suspect]
     Indication: CROHN'S DISEASE
     Dosage: SEE IMAGE
     Route: 042
     Dates: start: 20010925
  17. REMICADE [Suspect]
     Indication: CROHN'S DISEASE
     Dosage: SEE IMAGE
     Route: 042
     Dates: start: 20011207
  18. REMICADE [Suspect]
     Indication: CROHN'S DISEASE
     Dosage: SEE IMAGE
     Route: 042
     Dates: start: 20020218
  19. REMICADE [Suspect]
     Indication: CROHN'S DISEASE
     Dosage: SEE IMAGE
     Route: 042
     Dates: start: 20020419
  20. REMICADE [Suspect]
     Indication: CROHN'S DISEASE
     Dosage: SEE IMAGE
     Route: 042
     Dates: start: 20020721
  21. PREDNISONE [Concomitant]
  22. IMURAN [Concomitant]
  23. ALLEGRA [Concomitant]
  24. ATACAND [Concomitant]
  25. BENTYL [Concomitant]
  26. CALCIUM (CALCIUM) [Concomitant]
  27. CLOTRIMAZOLE (CLOTRIMAZOLE) [Concomitant]
  28. COLESTID [Concomitant]
  29. DETROL [Concomitant]
  30. ESTROGEN (ESTROGEN NOS) [Concomitant]
  31. FIBERCON (POLYCARBOPHIL CALCIUM) [Concomitant]
  32. FLUORI-METHANE (P.R. SPRAY) [Concomitant]
  33. GLUCOSAMINE (GLUCOSAMINE) [Concomitant]
  34. HYDROCHLOROTHIAZIDE [Concomitant]
  35. HUMIBID (GUAIFENESIN) [Concomitant]
  36. NOVOLIN 85/15 [Concomitant]
  37. K-DUR 10 [Concomitant]
  38. LEXAPRO [Concomitant]
  39. LIDOCAINE [Concomitant]
  40. LOMOTIL [Concomitant]
  41. MIACALCIN [Concomitant]
  42. NEURONTIN [Concomitant]
  43. PHRENILIN (PHRENILIN) [Concomitant]
  44. VITAMIN A [Concomitant]
  45. VITAMIN D [Concomitant]
  46. PROGESTERONE [Concomitant]
  47. VITAMIN E [Concomitant]
  48. MULTIVITAMIN [Concomitant]
  49. XANAX [Concomitant]
  50. WELLBUTRIN [Concomitant]
  51. PRELIEF (CALCIUM GLYCEROPHOSPHATE) [Concomitant]

REACTIONS (8)
  - DRUG INEFFECTIVE [None]
  - DYSPNOEA [None]
  - HEPATIC STEATOSIS [None]
  - PLEURAL EFFUSION [None]
  - PNEUMONIA [None]
  - PULMONARY FIBROSIS [None]
  - RASH [None]
  - UPPER RESPIRATORY TRACT INFECTION [None]
